FAERS Safety Report 8306576-6 (Version None)
Quarter: 2012Q2

REPORT INFORMATION
  Report Type: 
  Country: None (occurrence: None)
  Receive Date: 20120424
  Receipt Date: 20120416
  Transmission Date: 20120825
  Serious: Yes (Hospitalization, Other)
  Sender: FDA-Public Use
  Company Number: US-BAYER-2012-024952

PATIENT
  Age: 25 Year
  Sex: Female
  Weight: 68.027 kg

DRUGS (1)
  1. MIRENA [Suspect]
     Indication: CONTRACEPTION
     Dosage: 20 MCG/24HR, CONT
     Route: 015
     Dates: start: 20120307, end: 20120307

REACTIONS (5)
  - VOMITING [None]
  - NAUSEA [None]
  - HYPERHIDROSIS [None]
  - PROCEDURAL PAIN [None]
  - PAIN [None]
